FAERS Safety Report 6576042-7 (Version None)
Quarter: 2010Q1

REPORT INFORMATION
  Report Type: 
  Country: None (occurrence: None)
  Receive Date: 20100209
  Receipt Date: 20100128
  Transmission Date: 20100710
  Serious: Yes (Hospitalization)
  Sender: FDA-Public Use
  Company Number: PHHY2010FR04672

PATIENT
  Sex: Female

DRUGS (14)
  1. VALSARTAN AND HYDROCHLOROTHIAZIDE [Suspect]
     Dosage: 1 DF, QD
     Route: 048
     Dates: start: 20091109, end: 20091117
  2. CARDENSIEL [Suspect]
     Dosage: 1.25 MG, QD
     Route: 048
     Dates: start: 20091109
  3. MEMANTINE HCL [Suspect]
     Dosage: 10 MG, QD
     Route: 048
     Dates: start: 20090511, end: 20091117
  4. ALDACTONE [Suspect]
     Dosage: 25 MG, QD
     Route: 048
     Dates: start: 20091109, end: 20091117
  5. FUROSEMIDE [Suspect]
     Dosage: 2 DF PER DAY
     Route: 048
     Dates: start: 20091109, end: 20091117
  6. TRIMEBUTINE [Suspect]
     Dosage: 6 DF PER DAY
     Route: 048
     Dates: start: 20091109, end: 20091117
  7. BIPERIDYS [Suspect]
     Dosage: 3 DF PER DAY
     Route: 048
     Dates: start: 20091109, end: 20091117
  8. FORLAX [Suspect]
     Dosage: 2 DF PER DAY
     Route: 048
     Dates: start: 20091109, end: 20091117
  9. DIFFU K [Suspect]
     Dosage: 6 DF  PER DAY
     Route: 048
     Dates: start: 20091109, end: 20091117
  10. TOPALGIC [Concomitant]
  11. PREVISCAN [Concomitant]
  12. ESOMEPRAZOLE [Concomitant]
  13. DAFALGAN [Concomitant]
  14. ZOLPIDEM [Concomitant]

REACTIONS (7)
  - CYANOSIS [None]
  - DEHYDRATION [None]
  - GENERAL PHYSICAL HEALTH DETERIORATION [None]
  - MENTAL DISORDER [None]
  - NASOPHARYNGITIS [None]
  - RENAL FAILURE ACUTE [None]
  - SINUS BRADYCARDIA [None]
